FAERS Safety Report 7934033-5 (Version None)
Quarter: 2011Q4

REPORT INFORMATION
  Report Type: 
  Country: None (occurrence: None)
  Receive Date: 20111122
  Receipt Date: 20070125
  Transmission Date: 20120403
  Serious: Yes (Other)
  Sender: FDA-Public Use
  Company Number: PHHY2007AR05322

PATIENT
  Sex: Male

DRUGS (1)
  1. TRILEPTAL [Suspect]
     Indication: ARRHYTHMIA
     Dosage: 300 MG, UNK
     Dates: start: 20060101

REACTIONS (4)
  - CONVULSION [None]
  - ABDOMINAL DISCOMFORT [None]
  - MEMORY IMPAIRMENT [None]
  - DAYDREAMING [None]
